FAERS Safety Report 5130658-3 (Version None)
Quarter: 2006Q4

REPORT INFORMATION
  Report Type: 
  Country: None (occurrence: None)
  Receive Date: 20061019
  Receipt Date: 20061012
  Transmission Date: 20070319
  Serious: Yes (Hospitalization)
  Sender: FDA-Public Use
  Company Number: CG-MERCK-0610USA09899

PATIENT
  Age: 26 Year
  Sex: Male

DRUGS (1)
  1. STROMECTOL [Suspect]
     Route: 048
     Dates: start: 20060728, end: 20060728

REACTIONS (3)
  - COMA [None]
  - OEDEMA PERIPHERAL [None]
  - PRURITUS [None]
